FAERS Safety Report 5160133-1 (Version None)
Quarter: 2006Q4

REPORT INFORMATION
  Report Type: 
  Country: None (occurrence: None)
  Receive Date: 20061129
  Receipt Date: 20061120
  Transmission Date: 20070319
  Serious: Yes (Hospitalization)
  Sender: FDA-Public Use
  Company Number: FR-NOVOPROD-258788

PATIENT
  Age: 81 Year
  Sex: Male

DRUGS (7)
  1. INSULATARD FLEXPEN [Suspect]
     Indication: DIABETES MELLITUS
     Dosage: 12 IU, QD
     Route: 058
  2. ATHYMIL [Concomitant]
     Dosage: 100 MG, QD
     Route: 048
     Dates: end: 20060925
  3. NEXIUM [Concomitant]
     Dosage: 1 DF, QD
     Route: 048
  4. NITRODERM [Concomitant]
     Dosage: 5 MG, QD
  5. CORDARONE [Concomitant]
     Dosage: 200 MG, QD
     Route: 048
     Dates: end: 20060101
  6. LASIX [Concomitant]
     Dosage: 2 TAB, QD
     Route: 048
  7. DIFFU K [Concomitant]
     Dosage: 3 DF, QD
     Route: 048

REACTIONS (5)
  - ALANINE AMINOTRANSFERASE INCREASED [None]
  - ASPARTATE AMINOTRANSFERASE INCREASED [None]
  - BLOOD ALKALINE PHOSPHATASE INCREASED [None]
  - GAMMA-GLUTAMYLTRANSFERASE INCREASED [None]
  - TRANSAMINASES INCREASED [None]
